FAERS Safety Report 5703234-9 (Version None)
Quarter: 2008Q2

REPORT INFORMATION
  Report Type: 
  Country: None (occurrence: None)
  Receive Date: 20080411
  Receipt Date: 20080401
  Transmission Date: 20081010
  Serious: Yes (Other)
  Sender: FDA-Public Use
  Company Number: US-PFIZER INC-2008001106

PATIENT
  Sex: Female
  Weight: 72.727 kg

DRUGS (2)
  1. DILANTIN [Suspect]
     Indication: CONVULSION
  2. HYDROCHLOROTHIAZIDE [Concomitant]

REACTIONS (10)
  - ASTHENIA [None]
  - BODY HEIGHT DECREASED [None]
  - CEREBROVASCULAR ACCIDENT [None]
  - CONVULSION [None]
  - DIZZINESS [None]
  - FACIAL PALSY [None]
  - GAIT DISTURBANCE [None]
  - MALAISE [None]
  - SKIN HYPERPIGMENTATION [None]
  - SOMNOLENCE [None]
